FAERS Safety Report 11368978 (Version 1)
Quarter: 2015Q3

REPORT INFORMATION
  Report Type: Spontaneous
  Country: CH (occurrence: CH)
  Receive Date: 20150812
  Receipt Date: 20150812
  Transmission Date: 20151125
  Serious: Yes (Other)
  Sender: FDA-Public Use
  Company Number: CH-AMGEN-CHESP2015081240

PATIENT
  Age: 42 Year
  Sex: Male

DRUGS (8)
  1. PREDNISONE. [Suspect]
     Active Substance: PREDNISONE
     Indication: MALIGNANT LYMPHOID NEOPLASM
     Dosage: LAST DOSE PRIOR TO SAE 05/OCT/2010
     Route: 048
     Dates: start: 20100831
  2. DOXORUBICIN [Suspect]
     Active Substance: DOXORUBICIN
     Indication: MALIGNANT LYMPHOID NEOPLASM
     Dosage: LAST DOSE PRIOR TO SAE 22/SEP/2010
     Route: 042
     Dates: start: 20100831
  3. PROCARBAZINE [Suspect]
     Active Substance: PROCARBAZINE
     Indication: MALIGNANT LYMPHOID NEOPLASM
     Dosage: LAST DOSE PRIOR TO SAE 25/SEP/2010
     Route: 048
     Dates: start: 20100831
  4. ETOPOSIDE. [Suspect]
     Active Substance: ETOPOSIDE
     Indication: MALIGNANT LYMPHOID NEOPLASM
     Dosage: LAST DOSE PRIOR TO SAE 24/SEP/2010
     Route: 042
     Dates: start: 20100831
  5. PEGFILGRASTIM [Suspect]
     Active Substance: PEGFILGRASTIM
     Indication: MALIGNANT LYMPHOID NEOPLASM
     Dosage: LAST DOSE PRIOR TO SAE 25/SEP/2010
     Route: 058
     Dates: start: 20100903
  6. VINCRISTINE [Suspect]
     Active Substance: VINCRISTINE
     Indication: MALIGNANT LYMPHOID NEOPLASM
     Dosage: LAST DOSE PRIOR TO SAE 29/SEP/2010
     Route: 042
     Dates: start: 20100907
  7. BLEOMYCIN [Suspect]
     Active Substance: BLEOMYCIN SULFATE
     Indication: MALIGNANT LYMPHOID NEOPLASM
     Dosage: LAST DOSE PRIOR TO SAE 29/SEP/2010
     Route: 042
     Dates: start: 20100907
  8. CYCLOPHOSPHAMIDE. [Suspect]
     Active Substance: CYCLOPHOSPHAMIDE
     Indication: MALIGNANT LYMPHOID NEOPLASM
     Dosage: LAST DOSE PRIOR TO SAE 22/SEP/2010
     Route: 042
     Dates: start: 20100831

REACTIONS (1)
  - Herpes zoster [Recovered/Resolved]

NARRATIVE: CASE EVENT DATE: 20101011
